FAERS Safety Report 6193391-5 (Version None)
Quarter: 2009Q2

REPORT INFORMATION
  Report Type: 
  Country: None (occurrence: None)
  Receive Date: 20090514
  Receipt Date: 20090514
  Transmission Date: 20091009
  Serious: Yes (Other)
  Sender: FDA-Public Use
  Company Number: None

PATIENT
  Sex: Male
  Weight: 83.9154 kg

DRUGS (1)
  1. NIASPAN [Suspect]
     Indication: BLOOD CHOLESTEROL INCREASED
     Dosage: 3 TABLETS 1/DAY PO
     Route: 048
     Dates: start: 20040101, end: 20090513

REACTIONS (3)
  - GLOSSODYNIA [None]
  - HYPERGEUSIA [None]
  - ORAL DISCOMFORT [None]
